FAERS Safety Report 5930754-4 (Version None)
Quarter: 2008Q4

REPORT INFORMATION
  Report Type: 
  Country: None (occurrence: None)
  Receive Date: 20081022
  Receipt Date: 20081006
  Transmission Date: 20090506
  Serious: Yes (Hospitalization)
  Sender: FDA-Public Use
  Company Number: DSA_32503_2008

PATIENT
  Sex: Female

DRUGS (4)
  1. LORAZEPAM [Suspect]
     Indication: DRUG USE FOR UNKNOWN INDICATION
     Dosage: (2.5 MG 1X, ORAL), (2.5 MG ORAL)
     Route: 048
     Dates: start: 20081004, end: 20081004
  2. DIAZEPAM [Suspect]
     Indication: DRUG USE FOR UNKNOWN INDICATION
     Dosage: (20 MG 1X, ORAL), (20 MG QD ORAL)
     Route: 048
     Dates: start: 20081004, end: 20081004
  3. SEROQUEL [Suspect]
     Indication: DRUG USE FOR UNKNOWN INDICATION
     Dosage: (1200 MG 1X, ORAL), (1200 MG 1X ORAL)
     Route: 048
     Dates: start: 20081004, end: 20081004
  4. ZYPREXA [Suspect]
     Indication: DRUG USE FOR UNKNOWN INDICATION
     Dosage: (20 MG 1X, ORAL), (20 MG QD ORAL)
     Route: 048
     Dates: start: 20081004, end: 20081004

REACTIONS (1)
  - MULTIPLE DRUG OVERDOSE ACCIDENTAL [None]
